FAERS Safety Report 13407084 (Version 2)
Quarter: 2017Q2

REPORT INFORMATION
  Report Type: Spontaneous
  Country: US (occurrence: US)
  Receive Date: 20170405
  Receipt Date: 20170509
  Transmission Date: 20170830
  Serious: No
  Sender: FDA-Public Use
  Company Number: US-009507513-1704USA000713

PATIENT
  Age: 65 Year
  Sex: Female
  Weight: 44.1 kg

DRUGS (6)
  1. DEXAMETHASONE. [Concomitant]
     Active Substance: DEXAMETHASONE
     Dosage: 12 MG, UNK
     Route: 042
  2. EMEND (FOSAPREPITANT DIMEGLUMINE) [Suspect]
     Active Substance: FOSAPREPITANT DIMEGLUMINE
     Indication: PROPHYLAXIS OF NAUSEA AND VOMITING
     Dosage: 150 MG, Q3W
     Route: 042
     Dates: start: 20170119, end: 20170119
  3. CISPLATIN. [Concomitant]
     Active Substance: CISPLATIN
     Dosage: 108 MG, UNK
     Route: 042
  4. ALIMTA [Concomitant]
     Active Substance: PEMETREXED DISODIUM
     Dosage: 720 MG, UNK
     Route: 042
  5. EMEND (FOSAPREPITANT DIMEGLUMINE) [Suspect]
     Active Substance: FOSAPREPITANT DIMEGLUMINE
     Dosage: 150 MG, Q3W
     Route: 042
     Dates: start: 20170209, end: 20170209
  6. ALOXI [Concomitant]
     Active Substance: PALONOSETRON HYDROCHLORIDE
     Dosage: 0.25 MG, UNK
     Route: 042

REACTIONS (7)
  - Erythema [Recovered/Resolved]
  - Muscle twitching [Recovered/Resolved]
  - Tremor [Recovered/Resolved]
  - Wheezing [Recovered/Resolved]
  - Rhonchi [Recovered/Resolved]
  - Dyspnoea [Recovered/Resolved]
  - Palpitations [Recovered/Resolved]

NARRATIVE: CASE EVENT DATE: 20170209
